FAERS Safety Report 23077611 (Version 1)
Quarter: 2023Q4

REPORT INFORMATION
  Report Type: Spontaneous
  Country: US (occurrence: US)
  Receive Date: 20231018
  Receipt Date: 20231018
  Transmission Date: 20240110
  Serious: Yes (Death, Hospitalization, Other)
  Sender: FDA-Public Use
  Company Number: US-GRANULES-US-2023GRALIT00266

PATIENT
  Age: 23 Year
  Sex: Female

DRUGS (1)
  1. NAPROXEN [Suspect]
     Active Substance: NAPROXEN
     Indication: Product used for unknown indication
     Route: 048

REACTIONS (23)
  - Agitation [Fatal]
  - Mental status changes [Fatal]
  - Nausea [Fatal]
  - Vomiting [Fatal]
  - Tachypnoea [Fatal]
  - Seizure [Fatal]
  - Hypoxia [Fatal]
  - Metabolic acidosis [Fatal]
  - Blood lactic acid increased [Fatal]
  - Acute kidney injury [Fatal]
  - Troponin increased [Fatal]
  - Shock [Fatal]
  - Multiple organ dysfunction syndrome [Fatal]
  - Cardiac failure acute [Fatal]
  - Hypertransaminasaemia [Fatal]
  - Ischaemia [Fatal]
  - Coagulopathy [Fatal]
  - Renal failure [Fatal]
  - Acute respiratory distress syndrome [Fatal]
  - Cardiac arrest [Fatal]
  - Pulmonary oedema [Fatal]
  - Toxicity to various agents [Fatal]
  - Intentional overdose [Unknown]
